FAERS Safety Report 14573525 (Version 2)
Quarter: 2018Q1

REPORT INFORMATION
  Report Type: Spontaneous
  Country: US (occurrence: US)
  Receive Date: 20180226
  Receipt Date: 20180308
  Transmission Date: 20180509
  Serious: Yes (Hospitalization, Other)
  Sender: FDA-Public Use
  Company Number: US-INTERCEPT-PMOCA2018000251

PATIENT

DRUGS (2)
  1. OCALIVA [Suspect]
     Active Substance: OBETICHOLIC ACID
     Indication: PRIMARY BILIARY CHOLANGITIS
     Dosage: 5 MG, QD
     Route: 048
     Dates: start: 201708, end: 201801
  2. UDCA [Concomitant]
     Active Substance: URSODIOL
     Dosage: 300 MG, TID

REACTIONS (6)
  - Renal impairment [Not Recovered/Not Resolved]
  - Pruritus [Unknown]
  - Cholestasis [Unknown]
  - Kidney fibrosis [Unknown]
  - Hepatic cirrhosis [Not Recovered/Not Resolved]
  - Model for end stage liver disease score increased [Unknown]

NARRATIVE: CASE EVENT DATE: 201801
